FAERS Safety Report 20088968 (Version 4)
Quarter: 2022Q2

REPORT INFORMATION
  Report Type: Other
  Country: US (occurrence: US)
  Receive Date: 20211119
  Receipt Date: 20220609
  Transmission Date: 20220721
  Serious: No
  Sender: FDA-Public Use
  Company Number: US-DECIPHERA PHARMACEUTICALS LLC-2021US000929

PATIENT
  Sex: Female

DRUGS (3)
  1. QINLOCK [Suspect]
     Active Substance: RIPRETINIB
     Indication: Gastrointestinal stromal tumour
     Dosage: 50 MILLIGRAM, QD
     Route: 048
  2. QINLOCK [Suspect]
     Active Substance: RIPRETINIB
     Dosage: 150 MILLIGRAM, QD
     Route: 048
  3. QINLOCK [Suspect]
     Active Substance: RIPRETINIB
     Dosage: 50 MILLIGRAM, QD
     Route: 048

REACTIONS (2)
  - Seasonal allergy [Unknown]
  - Alopecia [Recovering/Resolving]
